FAERS Safety Report 16477497 (Version 1)
Quarter: 2019Q2

REPORT INFORMATION
  Report Type: Report from Study
  Country: CA (occurrence: CA)
  Receive Date: 20190626
  Receipt Date: 20190626
  Transmission Date: 20190711
  Serious: Yes (Hospitalization, Other)
  Sender: FDA-Public Use
  Company Number: PHHY2016CA179677

PATIENT
  Age: 88 Year
  Sex: Male

DRUGS (5)
  1. SANDOSTATIN LAR DEPOT [Suspect]
     Active Substance: OCTREOTIDE ACETATE
     Dosage: 30 MG, QMO
     Route: 030
     Dates: start: 20170214
  2. TYLENOL [Concomitant]
     Active Substance: ACETAMINOPHEN
     Indication: PRODUCT USED FOR UNKNOWN INDICATION
     Dosage: UNK
     Route: 048
  3. SANDOSTATIN LAR DEPOT [Suspect]
     Active Substance: OCTREOTIDE ACETATE
     Indication: CARCINOID TUMOUR
     Dosage: 30 MG, QMO (EVERY 4 WEEKS)
     Route: 030
     Dates: start: 20161130
  4. SANDOSTATIN [Suspect]
     Active Substance: OCTREOTIDE ACETATE
     Indication: CARCINOID TUMOUR
     Dosage: TEST DOSE, ONCE/SINGLE
     Route: 058
     Dates: start: 20161017, end: 20161017
  5. SANDOSTATIN LAR DEPOT [Suspect]
     Active Substance: OCTREOTIDE ACETATE
     Dosage: 60 MG, QMO (EVERY 4 WEEKS)
     Route: 030
     Dates: start: 20170214

REACTIONS (10)
  - Arthralgia [Unknown]
  - Blood pressure systolic increased [Unknown]
  - Nerve compression [Unknown]
  - Breast swelling [Unknown]
  - Diarrhoea [Recovering/Resolving]
  - Spinal pain [Unknown]
  - Heart rate decreased [Unknown]
  - Chest pain [Unknown]
  - Intestinal obstruction [Unknown]
  - Renal impairment [Unknown]

NARRATIVE: CASE EVENT DATE: 201612
